FAERS Safety Report 9124336 (Version 1)
Quarter: 2013Q1

REPORT INFORMATION
  Report Type: Spontaneous
  Country: US (occurrence: US)
  Receive Date: 20130227
  Receipt Date: 20130227
  Transmission Date: 20140127
  Serious: Yes (Other)
  Sender: FDA-Public Use
  Company Number: US-TEVA-387805USA

PATIENT
  Sex: Female

DRUGS (1)
  1. ESTRADIOL [Suspect]

REACTIONS (11)
  - Haemorrhage [Unknown]
  - Hair growth abnormal [Unknown]
  - Oedema [Unknown]
  - Increased appetite [Unknown]
  - Acne [Unknown]
  - Confusional state [Unknown]
  - Blood glucose increased [Unknown]
  - Anger [Unknown]
  - Blood pressure increased [Unknown]
  - Contusion [Unknown]
  - Product contamination chemical [Unknown]
